FAERS Safety Report 12136639 (Version 2)
Quarter: 2016Q2

REPORT INFORMATION
  Report Type: Spontaneous
  Country: GB (occurrence: GB)
  Receive Date: 20160302
  Receipt Date: 20160517
  Transmission Date: 20160815
  Serious: Yes (Death, Other)
  Sender: FDA-Public Use
  Company Number: GB-TEVA-638153ACC

PATIENT
  Age: 97 Year
  Sex: Female

DRUGS (1)
  1. GABAPENTIN. [Suspect]
     Active Substance: GABAPENTIN
     Route: 065

REACTIONS (3)
  - Coma [Fatal]
  - Death [Fatal]
  - Wrong drug administered [Fatal]
